FAERS Safety Report 7322176-9 (Version None)
Quarter: 2011Q1

REPORT INFORMATION
  Report Type: 
  Country: None (occurrence: None)
  Receive Date: 20110228
  Receipt Date: 20110222
  Transmission Date: 20110831
  Serious: Yes (Death, Life-Threatening)
  Sender: FDA-Public Use
  Company Number: ES-MERCK-1102ESP00030

PATIENT
  Age: 92 Year
  Sex: Male

DRUGS (1)
  1. INVANZ [Suspect]
     Indication: CHOLECYSTITIS ACUTE
     Route: 042
     Dates: start: 20101130, end: 20101214

REACTIONS (5)
  - BILIARY SEPSIS [None]
  - ABDOMINAL DISTENSION [None]
  - NO THERAPEUTIC RESPONSE [None]
  - CHOLECYSTITIS ACUTE [None]
  - GRAND MAL CONVULSION [None]
